FAERS Safety Report 13863072 (Version 1)
Quarter: 2017Q3

REPORT INFORMATION
  Report Type: Spontaneous
  Country: BR (occurrence: BR)
  Receive Date: 20170814
  Receipt Date: 20170814
  Transmission Date: 20171127
  Serious: Yes (Hospitalization)
  Sender: FDA-Public Use
  Company Number: BR-ROCHE-1836811

PATIENT
  Age: 82 Year
  Sex: Female

DRUGS (1)
  1. ERIVEDGE [Suspect]
     Active Substance: VISMODEGIB
     Indication: BASAL CELL CARCINOMA
     Route: 065

REACTIONS (8)
  - Muscle spasms [Unknown]
  - Weight decreased [Unknown]
  - Craniocerebral injury [Unknown]
  - Fall [Unknown]
  - Alopecia [Unknown]
  - Dysgeusia [Unknown]
  - Radius fracture [Unknown]
  - Facial bones fracture [Unknown]
